FAERS Safety Report 4601071-X (Version None)
Quarter: 2005Q1

REPORT INFORMATION
  Report Type: 
  Country: None (occurrence: None)
  Receive Date: 20050308
  Receipt Date: 20050224
  Transmission Date: 20050727
  Serious: Yes (Other)
  Sender: FDA-Public Use
  Company Number: US-JNJFOC-20050206473

PATIENT
  Sex: Male
  Weight: 63.5 kg

DRUGS (7)
  1. REMICADE [Suspect]
     Indication: CROHN'S DISEASE
     Route: 042
  2. REMICADE [Suspect]
     Indication: FISTULA
     Route: 042
  3. PREDNISONE TAB [Concomitant]
  4. PLAVIX [Concomitant]
  5. PAIN MEDICINE [Concomitant]
  6. ENTERIC COATED BABY ASPIRIN [Concomitant]
  7. LEXOPRO [Concomitant]

REACTIONS (1)
  - FISTULA [None]
